FAERS Safety Report 17395035 (Version 1)
Quarter: 2020Q1

REPORT INFORMATION
  Report Type: Spontaneous
  Country: US (occurrence: US)
  Receive Date: 20200210
  Receipt Date: 20200210
  Transmission Date: 20200409
  Serious: No
  Sender: FDA-Public Use
  Company Number: US-GLAXOSMITHKLINE-US2020020457

PATIENT
  Sex: Female

DRUGS (5)
  1. ABREVA [Suspect]
     Active Substance: DOCOSANOL
     Indication: ORAL HERPES
     Dosage: UNK
  2. ABREVA [Suspect]
     Active Substance: DOCOSANOL
     Dosage: UNK
  3. ABREVA [Suspect]
     Active Substance: DOCOSANOL
     Dosage: UNK
  4. ABREVA [Suspect]
     Active Substance: DOCOSANOL
     Dosage: UNK
  5. ABREVA [Suspect]
     Active Substance: DOCOSANOL
     Dosage: UNK

REACTIONS (11)
  - Application site pain [Unknown]
  - Condition aggravated [Unknown]
  - Adverse drug reaction [Unknown]
  - Urticaria [Unknown]
  - Rash [Unknown]
  - Application site hypoaesthesia [Unknown]
  - Swelling face [Unknown]
  - Oral herpes [Unknown]
  - Drug ineffective [Unknown]
  - Application site swelling [Unknown]
  - Application site pruritus [Unknown]
